APPROVED DRUG PRODUCT: LINEZOLID
Active Ingredient: LINEZOLID
Strength: 600MG
Dosage Form/Route: TABLET;ORAL
Application: A204536 | Product #001
Applicant: AMNEAL PHARMACEUTICALS
Approved: Dec 21, 2015 | RLD: No | RS: No | Type: DISCN